FAERS Safety Report 7021632-0 (Version None)
Quarter: 2010Q3

REPORT INFORMATION
  Report Type: 
  Country: None (occurrence: None)
  Receive Date: 20100928
  Receipt Date: 20100917
  Transmission Date: 20110219
  Serious: Yes (Other)
  Sender: FDA-Public Use
  Company Number: 2010SP049816

PATIENT

DRUGS (1)
  1. INTRON A [Suspect]
     Indication: HEPATITIS C

REACTIONS (2)
  - BLINDNESS UNILATERAL [None]
  - OPTIC NEUROPATHY [None]
